FAERS Safety Report 4994838-X (Version None)
Quarter: 2006Q2

REPORT INFORMATION
  Report Type: 
  Country: None (occurrence: None)
  Receive Date: 20060508
  Receipt Date: 20050607
  Transmission Date: 20061013
  Serious: Yes (Other)
  Sender: FDA-Public Use
  Company Number: 2005GB01111

PATIENT
  Age: 20 Year
  Sex: Male
  Weight: 69 kg

DRUGS (7)
  1. QUETIAPINE FUMARATE [Suspect]
     Indication: SCHIZOPHRENIA
     Dosage: 450 MG OM + 600 MG ON
     Route: 048
     Dates: start: 20030101, end: 20050130
  2. QUETIAPINE FUMARATE [Suspect]
     Route: 048
     Dates: start: 20050131, end: 20050202
  3. ABILIFY [Suspect]
     Indication: SCHIZOPHRENIA
     Dosage: 15-30 MG
     Route: 048
     Dates: start: 20050204, end: 20050427
  4. ABILIFY [Suspect]
     Route: 048
  5. ABILIFY [Suspect]
     Route: 048
  6. PROCYCLIDINE HYDROCHLORIDE 2MG TAB [Concomitant]
     Indication: EXTRAPYRAMIDAL DISORDER
     Dosage: 2.5 MG TID - 2.5 MG OD
     Route: 048
     Dates: start: 20050308, end: 20050428
  7. CYCLIZINE [Concomitant]
     Indication: NAUSEA
     Dosage: 6 DOSES ONLY
     Route: 048
     Dates: start: 20050205

REACTIONS (2)
  - ATRIOVENTRICULAR BLOCK FIRST DEGREE [None]
  - ATRIOVENTRICULAR BLOCK SECOND DEGREE [None]
